FAERS Safety Report 5588641-X (Version None)
Quarter: 2008Q1

REPORT INFORMATION
  Report Type: 
  Country: None (occurrence: None)
  Receive Date: 20080111
  Receipt Date: 20080102
  Transmission Date: 20080703
  Serious: Yes (Disabling)
  Sender: FDA-Public Use
  Company Number: GB-PFIZER INC-2007099709

PATIENT
  Sex: Female
  Weight: 72 kg

DRUGS (16)
  1. ATORVASTATIN [Suspect]
     Indication: ACUTE MYOCARDIAL INFARCTION
     Route: 048
  2. ATORVASTATIN [Suspect]
  3. PARACETAMOL [Concomitant]
     Route: 048
  4. QUININE BISULFATE [Concomitant]
     Route: 048
  5. BUDESONIDE [Concomitant]
     Dosage: TEXT:1 PUFF-FREQ:DAILY
     Route: 055
  6. TRAVOPROST [Concomitant]
  7. BISOPROLOL [Concomitant]
     Route: 048
  8. AMLODIPINE [Concomitant]
     Route: 048
  9. CALCIUM CARBONATE [Concomitant]
  10. ACETYLSALICYLIC ACID SRT [Concomitant]
     Route: 048
  11. RAMIPRIL [Concomitant]
     Route: 048
  12. ALENDRONIC ACID [Concomitant]
     Route: 048
  13. LANSOPRAZOLE [Concomitant]
     Route: 048
  14. TERBUTALINE SULFATE [Concomitant]
     Dosage: TEXT:1 TO 2 PUFFS AS NEEDED
     Route: 055
  15. CO-CODAMOL [Concomitant]
     Route: 048
  16. ERYTHROMYCIN [Concomitant]
     Route: 048

REACTIONS (1)
  - NEUROPATHY PERIPHERAL [None]
